FAERS Safety Report 9387315 (Version 1)
Quarter: 2013Q3

REPORT INFORMATION
  Report Type: Spontaneous
  Country: US (occurrence: None)
  Receive Date: 20130703
  Receipt Date: 20130703
  Transmission Date: 20140515
  Serious: Yes (Other)
  Sender: FDA-Public Use
  Company Number: None

PATIENT
  Age: 58 Year
  Sex: Female
  Weight: 74.84 kg

DRUGS (4)
  1. SYNTHROID [Suspect]
     Indication: HYPOTHYROIDISM
     Dosage: STRENGTH:  0.1 MG?QUANTITY:  90?FREQUENCY:  ONCE @ 5:30 AM?HOW:  BY MOUTH??
     Route: 048
     Dates: start: 20130613, end: 20130614
  2. ARMOUR THYROID [Concomitant]
  3. FISH OIL [Concomitant]
  4. FLAX SEED [Concomitant]

REACTIONS (4)
  - Lethargy [None]
  - Swollen tongue [None]
  - Sensation of heaviness [None]
  - Product substitution issue [None]
